FAERS Safety Report 23515938 (Version 1)
Quarter: 2024Q1

REPORT INFORMATION
  Report Type: Spontaneous
  Country: US (occurrence: US)
  Receive Date: 20240213
  Receipt Date: 20240213
  Transmission Date: 20240410
  Serious: No
  Sender: FDA-Public Use
  Company Number: US-ACORDA-ACO_174555_2023

PATIENT
  Age: 84 Year
  Sex: Male

DRUGS (8)
  1. INBRIJA [Suspect]
     Active Substance: LEVODOPA
     Indication: Parkinson^s disease
     Dosage: 2 DOSAGE FORM (84 MG), PRN (NOT TO 5 DOSES A DAY)
     Dates: start: 20221001
  2. INBRIJA [Suspect]
     Active Substance: LEVODOPA
     Indication: On and off phenomenon
     Dosage: 2 DOSAGE FORM (84 MG), PRN (NOT TO 5 DOSES A DAY)
     Dates: start: 20221001
  3. INBRIJA [Suspect]
     Active Substance: LEVODOPA
     Dosage: 2 DOSAGE FORM (84 MG), PRN (NOT TO 5 DOSES A DAY)
     Dates: start: 20221001
  4. INBRIJA [Suspect]
     Active Substance: LEVODOPA
     Dosage: 2 DOSAGE FORM (84 MG), PRN (NOT TO 5 DOSES A DAY)
     Dates: start: 20221001
  5. INBRIJA [Suspect]
     Active Substance: LEVODOPA
     Dosage: 2 DOSAGE FORM (84 MG), PRN (NOT TO 5 DOSES A DAY)
     Dates: start: 20221001
  6. INBRIJA [Suspect]
     Active Substance: LEVODOPA
     Dosage: 2 DOSAGE FORM (84 MG), PRN (NOT TO 5 DOSES A DAY)
     Dates: start: 20221001
  7. RYTARY [Concomitant]
     Active Substance: CARBIDOPA\LEVODOPA
     Indication: Product used for unknown indication
     Dosage: 3 DOSAGE FORM (48.75/195 MG), QID
     Route: 065
  8. CARBIDOPA\LEVODOPA [Concomitant]
     Active Substance: CARBIDOPA\LEVODOPA
     Indication: Product used for unknown indication
     Dosage: QUICK ACTING (25/100 MG), TWICE OR THREE TIMES A WEEK, ONCE A DAY THE MOST
     Route: 065

REACTIONS (12)
  - Device issue [Unknown]
  - Wrong technique in device usage process [Unknown]
  - Product physical issue [Unknown]
  - Device malfunction [Unknown]
  - Incorrect dose administered by device [Unknown]
  - Device use issue [Unknown]
  - Device difficult to use [Unknown]
  - Product quality issue [Not Recovered/Not Resolved]
  - Cough [Not Recovered/Not Resolved]
  - Oropharyngeal discomfort [Not Recovered/Not Resolved]
  - Inappropriate schedule of product administration [Unknown]
  - Drug ineffective [Unknown]

NARRATIVE: CASE EVENT DATE: 20221001
